FAERS Safety Report 23478323 (Version 1)
Quarter: 2024Q1

REPORT INFORMATION
  Report Type: Spontaneous
  Country: GB (occurrence: GB)
  Receive Date: 20240204
  Receipt Date: 20240204
  Transmission Date: 20240410
  Serious: No
  Sender: FDA-Public Use
  Company Number: GB-IPSEN Group, Research and Development-2023-23870

PATIENT
  Age: 47 Year
  Sex: Female
  Weight: 80.6 kg

DRUGS (1)
  1. CABOMETYX [Suspect]
     Active Substance: CABOZANTINIB S-MALATE
     Indication: Papillary thyroid cancer
     Dosage: 60 MG, QD
     Route: 065
     Dates: start: 20230929, end: 20231009

REACTIONS (4)
  - Oropharyngeal pain [Unknown]
  - Blister [Unknown]
  - Mucosal inflammation [Unknown]
  - Product dose omission issue [Unknown]

NARRATIVE: CASE EVENT DATE: 20231001
